FAERS Safety Report 6671030-4 (Version None)
Quarter: 2010Q2

REPORT INFORMATION
  Report Type: 
  Country: None (occurrence: None)
  Receive Date: 20100407
  Receipt Date: 20100402
  Transmission Date: 20101027
  Serious: Yes (Life-Threatening, Other)
  Sender: FDA-Public Use
  Company Number: PHHY2010JP20699

PATIENT
  Age: 92 Year
  Sex: Female
  Weight: 50 kg

DRUGS (3)
  1. DIOVAN [Suspect]
     Indication: HYPERTENSION
     Dosage: 80 MG, QD
     Route: 048
     Dates: start: 20050330
  2. ADALAT CC [Concomitant]
     Dosage: 2 DF, UNK
     Route: 048
  3. FLUITRAN [Concomitant]
     Dosage: 2 DF, UNK
     Route: 048

REACTIONS (1)
  - GENERALISED OEDEMA [None]
